FAERS Safety Report 9828300 (Version 1)
Quarter: 2014Q1

REPORT INFORMATION
  Report Type: Spontaneous
  Country: IT (occurrence: IT)
  Receive Date: 20140117
  Receipt Date: 20140117
  Transmission Date: 20141002
  Serious: Yes (Death)
  Sender: FDA-Public Use
  Company Number: IT-ROXANE LABORATORIES, INC.-2014-RO-00045RO

PATIENT
  Age: 86 Year
  Sex: Female

DRUGS (5)
  1. METHOTREXATE [Suspect]
     Indication: RHEUMATOID ARTHRITIS
  2. CIPROFLOXACIN [Suspect]
     Indication: URINARY TRACT INFECTION
     Dosage: 1000 MG
  3. ALLOPURINOL [Concomitant]
     Indication: RHEUMATOID ARTHRITIS
  4. ALENDRONIC ACID [Concomitant]
     Indication: RHEUMATOID ARTHRITIS
  5. VENLAFAXINE [Concomitant]
     Indication: RHEUMATOID ARTHRITIS

REACTIONS (2)
  - Thrombocytopenia [Fatal]
  - Pancytopenia [Fatal]
